FAERS Safety Report 7511644-2 (Version None)
Quarter: 2011Q2

REPORT INFORMATION
  Report Type: 
  Country: None (occurrence: None)
  Receive Date: 20110531
  Receipt Date: 20110525
  Transmission Date: 20111010
  Serious: Yes (Disabling, Other)
  Sender: FDA-Public Use
  Company Number: DE-PFIZER INC-2011086234

PATIENT
  Age: 59 Year
  Sex: Female
  Weight: 79 kg

DRUGS (8)
  1. ATORVASTATIN CALCIUM [Suspect]
     Indication: BLOOD CHOLESTEROL INCREASED
     Dosage: 40 MG, 1X/DAY
     Dates: start: 20110128, end: 20110201
  2. TORASEMIDE [Concomitant]
     Dosage: 5 MG, 1X/DAY
     Dates: start: 20100101
  3. SIMVASTATIN [Concomitant]
     Dosage: 40 UNK, 1X/DAY
     Dates: start: 20100301, end: 20110127
  4. PANTOPRAZOLE [Concomitant]
     Dosage: 20 MG, 1X/DAY
     Dates: start: 20100301
  5. RAMIPRIL [Concomitant]
     Dosage: 2.5 MG, 2X/DAY
     Dates: start: 20100301
  6. ATORVASTATIN CALCIUM [Suspect]
     Indication: CARDIOVASCULAR EVENT PROPHYLAXIS
  7. METOPROLOL SUCCINATE [Concomitant]
     Dosage: 95 UNK, 2X/DAY
     Dates: start: 20100101
  8. ASPIRIN [Concomitant]
     Dosage: 100 UNK, 1X/DAY
     Dates: start: 20100101

REACTIONS (9)
  - DYSPNOEA [None]
  - NAUSEA [None]
  - VOMITING [None]
  - RASH [None]
  - SINUSITIS [None]
  - DRUG HYPERSENSITIVITY [None]
  - ABDOMINAL PAIN UPPER [None]
  - SWELLING [None]
  - DIARRHOEA [None]
